FAERS Safety Report 21025696 (Version 1)
Quarter: 2022Q2

REPORT INFORMATION
  Report Type: Spontaneous
  Country: US (occurrence: US)
  Receive Date: 20220630
  Receipt Date: 20220630
  Transmission Date: 20220721
  Serious: Yes (Hospitalization)
  Sender: FDA-Public Use
  Company Number: US-Vifor (International) Inc.-VIT-2022-04420

PATIENT
  Age: 57 Year
  Sex: Female
  Weight: 74.6 kg

DRUGS (1)
  1. MIRCERA [Suspect]
     Active Substance: METHOXY POLYETHYLENE GLYCOL-EPOETIN BETA
     Indication: Nephrogenic anaemia
     Route: 042
     Dates: start: 20220616, end: 20220616

REACTIONS (4)
  - Drug hypersensitivity [Unknown]
  - Chest pain [Unknown]
  - Flushing [Unknown]
  - Screaming [Unknown]

NARRATIVE: CASE EVENT DATE: 20220616
